FAERS Safety Report 7518872-0 (Version None)
Quarter: 2011Q2

REPORT INFORMATION
  Report Type: 
  Country: None (occurrence: None)
  Receive Date: 20110602
  Receipt Date: 20110525
  Transmission Date: 20111010
  Serious: Yes (Other)
  Sender: FDA-Public Use
  Company Number: FR-BRISTOL-MYERS SQUIBB COMPANY-15740772

PATIENT
  Age: 53 Year
  Sex: Male

DRUGS (3)
  1. FLUOROURACIL [Suspect]
     Indication: HEAD AND NECK CANCER
     Dosage: MOST RECENT INFUSION ON 15APR10
     Route: 042
     Dates: start: 20100322, end: 20100415
  2. CETUXIMAB [Suspect]
     Indication: HEAD AND NECK CANCER
     Dosage: MOST RECENT INFUSION ON 12APR10, START DOSE:400MG/M2, DOSE REINTRODUCED
     Route: 042
     Dates: start: 20100315
  3. CARBOPLATIN [Suspect]
     Indication: HEAD AND NECK CANCER
     Dosage: MOST RECENT INFUSION ON 15APR10
     Route: 042
     Dates: start: 20100322, end: 20100415

REACTIONS (6)
  - MUCOSAL INFLAMMATION [None]
  - BONE MARROW FAILURE [None]
  - WEIGHT DECREASED [None]
  - DERMATITIS [None]
  - DYSPHAGIA [None]
  - DRY MOUTH [None]
